FAERS Safety Report 19684242 (Version 8)
Quarter: 2022Q1

REPORT INFORMATION
  Report Type: Spontaneous
  Country: CA (occurrence: CA)
  Receive Date: 20210811
  Receipt Date: 20220315
  Transmission Date: 20220424
  Serious: Yes (Other)
  Sender: FDA-Public Use
  Company Number: CA-CELLTRION INC.-2020CA033923

PATIENT

DRUGS (11)
  1. INFLECTRA [Suspect]
     Active Substance: INFLIXIMAB-DYYB
     Indication: Crohn^s disease
     Dosage: 500 MG, EVERY 8 WEEKS (PATIENT ON INFLECTRA SINCE MANY YEARS (START DATE UNKNOWN)
     Route: 042
  2. INFLECTRA [Suspect]
     Active Substance: INFLIXIMAB-DYYB
     Dosage: 5 MG/KG EVERY 8 WEEKS
     Route: 042
     Dates: start: 20201203
  3. INFLECTRA [Suspect]
     Active Substance: INFLIXIMAB-DYYB
     Dosage: 5 MG/KG EVERY 8 WEEKS
     Dates: start: 20210127
  4. INFLECTRA [Suspect]
     Active Substance: INFLIXIMAB-DYYB
     Dosage: 500 MG (5MG/KG), EVERY 8 WEEKS
     Route: 042
     Dates: start: 20210324
  5. INFLECTRA [Suspect]
     Active Substance: INFLIXIMAB-DYYB
     Dosage: 500 MG (5MG/KG), EVERY 8 WEEKS
     Route: 042
     Dates: start: 20210519
  6. INFLECTRA [Suspect]
     Active Substance: INFLIXIMAB-DYYB
     Dosage: 500 MG (5MG/KG), EVERY 8 WEEKS
     Route: 042
     Dates: start: 20210519
  7. INFLECTRA [Suspect]
     Active Substance: INFLIXIMAB-DYYB
     Dosage: 500 MG (5MG/KG), EVERY 8 WEEKS
     Route: 042
     Dates: start: 20210714
  8. INFLECTRA [Suspect]
     Active Substance: INFLIXIMAB-DYYB
     Dosage: 500 MG (5MG/KG), EVERY 8 WEEKS
     Route: 042
     Dates: start: 20210913
  9. INFLECTRA [Suspect]
     Active Substance: INFLIXIMAB-DYYB
     Dosage: 500 MG (5MG/KG), EVERY 8 WEEKS
     Route: 042
     Dates: start: 20211109
  10. INFLECTRA [Suspect]
     Active Substance: INFLIXIMAB-DYYB
     Dosage: 500 MG (5MG/KG), EVERY 8 WEEKS
     Route: 042
     Dates: start: 20220104
  11. INFLECTRA [Suspect]
     Active Substance: INFLIXIMAB-DYYB
     Dosage: 500 MG, (5MG/KG), EVERY 8 WEEKS
     Route: 042
     Dates: start: 20220303

REACTIONS (12)
  - Condition aggravated [Recovering/Resolving]
  - Circumstance or information capable of leading to medication error [Unknown]
  - Weight increased [Unknown]
  - Malaise [Unknown]
  - Arthralgia [Unknown]
  - Joint swelling [Not Recovered/Not Resolved]
  - Hypoaesthesia [Unknown]
  - Frustration tolerance decreased [Not Recovered/Not Resolved]
  - Inappropriate schedule of product administration [Unknown]
  - Off label use [Unknown]
  - Intentional product use issue [Unknown]
  - Off label use [Unknown]

NARRATIVE: CASE EVENT DATE: 20201203
